FAERS Safety Report 5072722-3 (Version None)
Quarter: 2006Q3

REPORT INFORMATION
  Report Type: 
  Country: None (occurrence: None)
  Receive Date: 20060807
  Receipt Date: 20060503
  Transmission Date: 20061208
  Serious: Yes (Death)
  Sender: FDA-Public Use
  Company Number: US-SANOFI-SYNTHELABO-A03200602835

PATIENT
  Sex: Male

DRUGS (9)
  1. PLAVIX [Suspect]
     Indication: MYOCARDIAL INFARCTION
     Route: 048
     Dates: start: 20050901, end: 20060426
  2. ZOLOFT [Concomitant]
     Route: 048
  3. PROTONIX [Concomitant]
     Route: 048
  4. LOPRESSOR [Concomitant]
     Route: 048
  5. NIASPAN [Concomitant]
     Route: 048
  6. LANOXIN [Concomitant]
     Route: 048
     Dates: start: 20041208, end: 20060425
  7. ASPIRIN [Suspect]
     Indication: MYOCARDIAL INFARCTION
     Route: 048
     Dates: start: 20050901
  8. COUMADIN [Suspect]
     Indication: MYOCARDIAL INFARCTION
     Dosage: AVERAGE DOSE 7.5 MG MWF/5 MG SSTTH
     Route: 048
     Dates: start: 20050901
  9. COUMADIN [Suspect]
     Indication: ATRIAL FIBRILLATION
     Dosage: AVERAGE DOSE 7.5 MG MWF/5 MG SSTTH
     Route: 048
     Dates: start: 20050901

REACTIONS (2)
  - GASTROINTESTINAL HAEMORRHAGE [None]
  - HAEMORRHAGIC STROKE [None]
